FAERS Safety Report 20929477 (Version 1)
Quarter: 2022Q2

REPORT INFORMATION
  Report Type: Spontaneous
  Country: CN (occurrence: CN)
  Receive Date: 20220608
  Receipt Date: 20220608
  Transmission Date: 20220721
  Serious: Yes (Other)
  Sender: FDA-Public Use
  Company Number: CN-SUN PHARMACEUTICAL INDUSTRIES LTD-2022R1-339430

PATIENT
  Age: 68 Year
  Sex: Male

DRUGS (3)
  1. OXALIPLATIN [Suspect]
     Active Substance: OXALIPLATIN
     Indication: Acinar cell carcinoma of pancreas
     Dosage: 150 MILLIGRAM, ON DAY 1
     Route: 065
     Dates: start: 201906
  2. TORIPALIMAB [Suspect]
     Active Substance: TORIPALIMAB
     Indication: Acinar cell carcinoma of pancreas
     Dosage: 240 MILLIGRAM, ON DAY 1; EVERY 3 WEEKS
     Route: 065
     Dates: start: 201908
  3. TS-1 [Concomitant]
     Active Substance: GIMERACIL\OTERACIL\TEGAFUR
     Indication: Acinar cell carcinoma of pancreas
     Dosage: 50 MILLIGRAM, BID, ON DAYS 1-14; EVERY 3 WEEKS
     Route: 065
     Dates: start: 201906

REACTIONS (2)
  - Therapy partial responder [Unknown]
  - Pruritus [Unknown]

NARRATIVE: CASE EVENT DATE: 20191201
